FAERS Safety Report 5421746-2 (Version None)
Quarter: 2007Q3

REPORT INFORMATION
  Report Type: 
  Country: None (occurrence: None)
  Receive Date: 20070821
  Receipt Date: 20070809
  Transmission Date: 20080115
  Serious: Yes (Other)
  Sender: FDA-Public Use
  Company Number: US-PFIZER INC-2007067508

PATIENT
  Sex: Female

DRUGS (3)
  1. LYRICA [Suspect]
  2. CORTISONE ACETATE TAB [Concomitant]
  3. HYDROCODONE BITARTRATE [Concomitant]

REACTIONS (3)
  - EYE SWELLING [None]
  - SWELLING FACE [None]
  - SWOLLEN TONGUE [None]
